FAERS Safety Report 9501663 (Version 1)
Quarter: 2013Q3

REPORT INFORMATION
  Report Type: Spontaneous
  Country: FR (occurrence: FR)
  Receive Date: 20130905
  Receipt Date: 20130905
  Transmission Date: 20140515
  Serious: Yes (Hospitalization)
  Sender: FDA-Public Use
  Company Number: FR-BRISTOL-MYERS SQUIBB COMPANY-19233998

PATIENT
  Age: 1 Month
  Sex: Female

DRUGS (2)
  1. ETOPOPHOS FOR INJ 100 MG [Suspect]
     Indication: NEUROBLASTOMA
     Route: 042
     Dates: start: 20130430, end: 20130502
  2. CARBOPLATINE [Suspect]
     Indication: NEUROBLASTOMA
     Route: 042
     Dates: start: 20130430, end: 20130502

REACTIONS (3)
  - Histiocytosis haematophagic [Recovered/Resolved]
  - Bone marrow failure [Recovered/Resolved]
  - Off label use [Unknown]
